FAERS Safety Report 24973003 (Version 1)
Quarter: 2025Q1

REPORT INFORMATION
  Report Type: Spontaneous
  Country: US (occurrence: US)
  Receive Date: 20250215
  Receipt Date: 20250215
  Transmission Date: 20250408
  Serious: No
  Sender: BRACCO
  Company Number: US-BRACCO-2024US03208

PATIENT

DRUGS (1)
  1. ISOVUE 370 [Suspect]
     Active Substance: IOPAMIDOL
     Indication: Computerised tomogram

REACTIONS (3)
  - Liquid product physical issue [Unknown]
  - Product deposit [Unknown]
  - No adverse event [Unknown]
